FAERS Safety Report 19299209 (Version 1)
Quarter: 2021Q2

REPORT INFORMATION
  Report Type: Spontaneous
  Country: US (occurrence: US)
  Receive Date: 20210525
  Receipt Date: 20210525
  Transmission Date: 20210717
  Serious: Yes (Other)
  Sender: FDA-Public Use
  Company Number: US-ROCHE-2830496

PATIENT
  Age: 72 Year
  Sex: Female
  Weight: 118.04 kg

DRUGS (18)
  1. XOLAIR [Suspect]
     Active Substance: OMALIZUMAB
  2. XOLAIR [Suspect]
     Active Substance: OMALIZUMAB
  3. FERROUS SULFATE. [Concomitant]
     Active Substance: FERROUS SULFATE
     Indication: MUSCLE SPASMS
  4. VITAMIN C [Concomitant]
     Active Substance: ASCORBIC ACID
     Indication: MUSCLE SPASMS
  5. LEVOTHYROXINE. [Concomitant]
     Active Substance: LEVOTHYROXINE
     Indication: HYPOTHYROIDISM
     Dosage: ONGOING: YES
     Route: 048
  6. VITAMIN D3 [Concomitant]
     Active Substance: CHOLECALCIFEROL
     Dosage: ONGOING: YES
     Route: 048
  7. NASONEX [Concomitant]
     Active Substance: MOMETASONE FUROATE
     Indication: NASAL CONGESTION
     Dosage: 1 SPRAY EACH NOSTRIL MORNING/NIGHT ;ONGOING: NO
     Route: 045
  8. PREDNISONE. [Concomitant]
     Active Substance: PREDNISONE
     Dosage: AS REQUIRED
  9. EPIPEN [Concomitant]
     Active Substance: EPINEPHRINE
     Dosage: AS REQUIRED
  10. HYDROXYZINE [Concomitant]
     Active Substance: HYDROXYZINE HYDROCHLORIDE
     Indication: URTICARIA
     Dosage: ONGOING: YES
     Route: 048
  11. FERROUS SULFATE. [Concomitant]
     Active Substance: FERROUS SULFATE
     Indication: ANAEMIA
     Dosage: TAKES TOGETHER WITH VITAMIN C ONCE AT NIGHT ;ONGOING: YES
     Route: 048
  12. VITAMIN C [Concomitant]
     Active Substance: ASCORBIC ACID
     Indication: ANAEMIA
     Dosage: TAKES TOGETHER WITH FERROUS SULFATE ONCE AT NIGHT ;ONGOING: YES
     Route: 048
  13. GABAPENTIN. [Concomitant]
     Active Substance: GABAPENTIN
     Dosage: ONGOING: YES
     Route: 048
  14. PEPCIDIN [Concomitant]
     Indication: HYPERSENSITIVITY
     Dosage: TAKES EVERY MORNING ;ONGOING: YES
     Route: 048
  15. MELATONIN [Concomitant]
     Active Substance: MELATONIN
     Dosage: TAKES 3 MG X 2 = 6 MG EVERY NIGHT ;ONGOING: YES
     Route: 048
  16. AZELASTINE. [Concomitant]
     Active Substance: AZELASTINE HYDROCHLORIDE
     Indication: NASAL CONGESTION
     Dosage: 1 SPRAY EACH NOSTRIL MORNING/NIGHT ;ONGOING: NO
     Route: 045
  17. XOLAIR [Suspect]
     Active Substance: OMALIZUMAB
     Indication: CHRONIC SPONTANEOUS URTICARIA
     Dosage: 2 SHOTS OF 150 MG IN BACK OF ARM ;ONGOING: YES
     Route: 058
     Dates: start: 202010
  18. METOPROLOL SUCCINATE. [Concomitant]
     Active Substance: METOPROLOL SUCCINATE
     Dosage: 24 HOUR TABLETS ;ONGOING: YES
     Route: 048

REACTIONS (4)
  - Facial bones fracture [Recovering/Resolving]
  - Muscle strain [Unknown]
  - Fall [Recovered/Resolved]
  - Foot fracture [Recovering/Resolving]

NARRATIVE: CASE EVENT DATE: 20210426
